FAERS Safety Report 17631712 (Version 1)
Quarter: 2020Q2

REPORT INFORMATION
  Report Type: Report from Study
  Country: KR (occurrence: KR)
  Receive Date: 20200406
  Receipt Date: 20200406
  Transmission Date: 20200713
  Serious: Yes (Death)
  Sender: FDA-Public Use
  Company Number: KR-ACTELION-A-CH2020-203893

PATIENT
  Age: 60 Year
  Sex: Male

DRUGS (1)
  1. OPSUMIT [Suspect]
     Active Substance: MACITENTAN
     Indication: PULMONARY ARTERIAL HYPERTENSION
     Dosage: 1 DF, OD
     Route: 048

REACTIONS (2)
  - Condition aggravated [Fatal]
  - Pulmonary arterial hypertension [Fatal]
